FAERS Safety Report 17717487 (Version 3)
Quarter: 2021Q1

REPORT INFORMATION
  Report Type: Spontaneous
  Country: US (occurrence: US)
  Receive Date: 20200428
  Receipt Date: 20210212
  Transmission Date: 20210419
  Serious: Yes (Other)
  Sender: FDA-Public Use
  Company Number: US-PFIZER INC-2020171424

PATIENT
  Age: 74 Year
  Sex: Female

DRUGS (1)
  1. IBRANCE [Suspect]
     Active Substance: PALBOCICLIB
     Indication: BREAST CANCER METASTATIC
     Dosage: 125 MG
     Dates: start: 20200220

REACTIONS (13)
  - Haemorrhagic diathesis [Unknown]
  - Bladder disorder [Unknown]
  - Transitional cell carcinoma [Unknown]
  - Contusion [Unknown]
  - Cough [Not Recovered/Not Resolved]
  - Fatigue [Unknown]
  - Sleep disorder [Unknown]
  - Insomnia [Unknown]
  - Dyspnoea [Unknown]
  - Nausea [Unknown]
  - Arthralgia [Unknown]
  - Second primary malignancy [Unknown]
  - Stomatitis [Unknown]

NARRATIVE: CASE EVENT DATE: 2020
